FAERS Safety Report 19735409 (Version 1)
Quarter: 2021Q3

REPORT INFORMATION
  Report Type: Spontaneous
  Country: US (occurrence: US)
  Receive Date: 20210824
  Receipt Date: 20210824
  Transmission Date: 20211014
  Serious: No
  Sender: FDA-Public Use
  Company Number: US-OREXO US, INC.-ORE202105-000028

PATIENT
  Sex: Male

DRUGS (8)
  1. TIZANIDINE. [Concomitant]
     Active Substance: TIZANIDINE
     Dosage: 2 MG
  2. TYLENOL [Concomitant]
     Active Substance: ACETAMINOPHEN
  3. ZUBSOLV [Suspect]
     Active Substance: BUPRENORPHINE HYDROCHLORIDE\NALOXONE HYDROCHLORIDE
     Indication: DRUG DEPENDENCE
     Dosage: THREE TIMES A DAY
     Dates: start: 2019
  4. LORAZEPAM. [Concomitant]
     Active Substance: LORAZEPAM
     Dosage: 0.25 MG
  5. IBUPROFEN. [Concomitant]
     Active Substance: IBUPROFEN
  6. HYDROXYZINE [Concomitant]
     Active Substance: HYDROXYZINE HYDROCHLORIDE
     Dosage: 50 MG
  7. MIRTAZAPINE. [Concomitant]
     Active Substance: MIRTAZAPINE
     Dosage: 15 MG (ONCE IN A WHILE)
  8. CLONIDINE. [Concomitant]
     Active Substance: CLONIDINE
     Dosage: 1 MG

REACTIONS (1)
  - Neuralgia [Not Recovered/Not Resolved]
